FAERS Safety Report 11119919 (Version 2)
Quarter: 2016Q1

REPORT INFORMATION
  Report Type: Spontaneous
  Country: US (occurrence: US)
  Receive Date: 20150518
  Receipt Date: 20160204
  Transmission Date: 20160525
  Serious: Yes (Other)
  Sender: FDA-Public Use
  Company Number: US-JNJFOC-20150507631

PATIENT
  Sex: Female

DRUGS (12)
  1. BEVACIZUMAB [Suspect]
     Active Substance: BEVACIZUMAB
     Indication: MALIGNANT PERITONEAL NEOPLASM
     Dosage: ON DAYS 1 AND 15
     Route: 065
  2. DOXORUBICIN HYDROCHLORIDE. [Suspect]
     Active Substance: DOXORUBICIN HYDROCHLORIDE
     Indication: MALIGNANT PERITONEAL NEOPLASM
     Dosage: ON DAY 1
     Route: 042
  3. CARBOPLATIN. [Suspect]
     Active Substance: CARBOPLATIN
     Indication: FALLOPIAN TUBE CANCER
     Dosage: (AUC5) ON DAY 1
     Route: 042
  4. DOXORUBICIN HYDROCHLORIDE. [Suspect]
     Active Substance: DOXORUBICIN HYDROCHLORIDE
     Indication: FALLOPIAN TUBE CANCER
     Dosage: ON DAY 1
     Route: 042
  5. BEVACIZUMAB [Suspect]
     Active Substance: BEVACIZUMAB
     Indication: FALLOPIAN TUBE CANCER
     Dosage: ON DAYS 1 AND 15
     Route: 065
  6. CARBOPLATIN. [Suspect]
     Active Substance: CARBOPLATIN
     Indication: MALIGNANT PERITONEAL NEOPLASM
     Dosage: (AUC5) ON DAY 1
     Route: 042
  7. BEVACIZUMAB [Suspect]
     Active Substance: BEVACIZUMAB
     Indication: OVARIAN EPITHELIAL CANCER RECURRENT
     Dosage: ON DAYS 1 AND 15
     Route: 065
  8. VELIPARIB [Suspect]
     Active Substance: VELIPARIB
     Indication: MALIGNANT PERITONEAL NEOPLASM
     Route: 048
  9. VELIPARIB [Suspect]
     Active Substance: VELIPARIB
     Indication: FALLOPIAN TUBE CANCER
     Route: 048
  10. VELIPARIB [Suspect]
     Active Substance: VELIPARIB
     Indication: OVARIAN EPITHELIAL CANCER RECURRENT
     Route: 048
  11. DOXORUBICIN HYDROCHLORIDE. [Suspect]
     Active Substance: DOXORUBICIN HYDROCHLORIDE
     Indication: OVARIAN EPITHELIAL CANCER RECURRENT
     Dosage: ON DAY 1
     Route: 042
  12. CARBOPLATIN. [Suspect]
     Active Substance: CARBOPLATIN
     Indication: OVARIAN EPITHELIAL CANCER RECURRENT
     Dosage: (AUC5) ON DAY 1
     Route: 042

REACTIONS (23)
  - Acidosis [Unknown]
  - Neutropenia [Unknown]
  - Abdominal pain [Unknown]
  - Vomiting [Unknown]
  - Decreased appetite [Unknown]
  - Hypomagnesaemia [Unknown]
  - Constipation [Unknown]
  - Diarrhoea [Unknown]
  - Fatigue [Unknown]
  - Hyperkalaemia [Unknown]
  - Hypokalaemia [Unknown]
  - Platelet count decreased [Unknown]
  - Lung infection [Unknown]
  - Epistaxis [Unknown]
  - Embolism [Unknown]
  - White blood cell count decreased [Unknown]
  - Hypophosphataemia [Unknown]
  - Hypertension [Unknown]
  - Neutrophil count decreased [Unknown]
  - Nausea [Unknown]
  - Anaemia [Unknown]
  - Muscular weakness [Unknown]
  - Hyponatraemia [Unknown]
